FAERS Safety Report 15733583 (Version 1)
Quarter: 2018Q4

REPORT INFORMATION
  Report Type: Spontaneous
  Country: DE (occurrence: DE)
  Receive Date: 20181218
  Receipt Date: 20181218
  Transmission Date: 20190205
  Serious: Yes (Hospitalization)
  Sender: FDA-Public Use
  Company Number: DE-TEVA-2018-DE-986940

PATIENT
  Age: 52 Year
  Sex: Male
  Weight: 100 kg

DRUGS (2)
  1. METHOTREXAT [Suspect]
     Active Substance: METHOTREXATE
     Indication: POLYARTHRITIS
     Route: 058
     Dates: start: 201610, end: 201803
  2. ROACTEMRA [Suspect]
     Active Substance: TOCILIZUMAB
     Indication: POLYARTHRITIS
     Route: 058
     Dates: start: 201707, end: 201803

REACTIONS (2)
  - Pneumonia [Recovered/Resolved]
  - Infectious pleural effusion [Recovered/Resolved]

NARRATIVE: CASE EVENT DATE: 20180322
